FAERS Safety Report 8278362-7 (Version None)
Quarter: 2012Q2

REPORT INFORMATION
  Report Type: 
  Country: None (occurrence: None)
  Receive Date: 20120412
  Receipt Date: 20111123
  Transmission Date: 20120825
  Serious: Yes (Other)
  Sender: FDA-Public Use
  Company Number: US-ASTRAZENECA-2011SE71876

PATIENT
  Age: 87 Year
  Sex: Female

DRUGS (3)
  1. NEXIUM [Suspect]
     Route: 048
  2. NASONEX [Concomitant]
  3. ACTONEL [Concomitant]

REACTIONS (2)
  - SPINAL FRACTURE [None]
  - OSTEOGENESIS IMPERFECTA [None]
